FAERS Safety Report 11097781 (Version 3)
Quarter: 2015Q2

REPORT INFORMATION
  Report Type: Spontaneous
  Country: ES (occurrence: ES)
  Receive Date: 20150507
  Receipt Date: 20150521
  Transmission Date: 20150821
  Serious: No
  Sender: FDA-Public Use
  Company Number: ES-009507513-1505ESP000382

PATIENT

DRUGS (2)
  1. SIMVASTATIN. [Suspect]
     Active Substance: SIMVASTATIN
     Dosage: UNK
     Route: 048
  2. DARUNAVIR [Interacting]
     Active Substance: DARUNAVIR
     Indication: HIV INFECTION

REACTIONS (1)
  - Drug interaction [Unknown]
